FAERS Safety Report 15657935 (Version 4)
Quarter: 2019Q1

REPORT INFORMATION
  Report Type: Spontaneous
  Country: US (occurrence: US)
  Receive Date: 20181126
  Receipt Date: 20190214
  Transmission Date: 20190417
  Serious: No
  Sender: FDA-Public Use
  Company Number: US-PFIZER INC-2018485391

PATIENT
  Age: 45 Year
  Sex: Female
  Weight: 63.5 kg

DRUGS (2)
  1. LYRICA [Suspect]
     Active Substance: PREGABALIN
     Indication: SPINAL PAIN
     Dosage: UNK
  2. LYRICA [Suspect]
     Active Substance: PREGABALIN
     Dosage: 150 MG, DAILY [25 MG, ONE IN THE MORNING, ONE IN THE AFTERNOON, AND 4 AT NIGHT]
     Route: 048
     Dates: start: 20181119, end: 201901

REACTIONS (4)
  - Intentional product use issue [Unknown]
  - Pain [Unknown]
  - Withdrawal syndrome [Unknown]
  - Flushing [Unknown]

NARRATIVE: CASE EVENT DATE: 201812
